FAERS Safety Report 16340783 (Version 2)
Quarter: 2019Q2

REPORT INFORMATION
  Report Type: Report from Study
  Country: US (occurrence: US)
  Receive Date: 20190522
  Receipt Date: 20190522
  Transmission Date: 20190711
  Serious: No
  Sender: FDA-Public Use
  Company Number: PHEH2017US042697

PATIENT
  Sex: Female

DRUGS (7)
  1. ZADITOR [Suspect]
     Active Substance: KETOTIFEN FUMARATE
     Indication: CONJUNCTIVITIS ALLERGIC
  2. KETOTIFEN FUMARATE. [Suspect]
     Active Substance: KETOTIFEN FUMARATE
     Indication: EYE PRURITUS
     Dosage: UNK
     Route: 065
     Dates: start: 20150227, end: 20160526
  3. KETOTIFEN FUMARATE. [Suspect]
     Active Substance: KETOTIFEN FUMARATE
     Indication: CONJUNCTIVITIS ALLERGIC
  4. ALAWAY [Suspect]
     Active Substance: KETOTIFEN FUMARATE
     Indication: PRODUCT USED FOR UNKNOWN INDICATION
     Route: 065
  5. AZELASTINE HYDROCHLORIDE. [Suspect]
     Active Substance: AZELASTINE HYDROCHLORIDE
     Indication: EYE PRURITUS
     Dosage: UNK
     Route: 065
     Dates: start: 20160526, end: 20170112
  6. ZADITOR [Suspect]
     Active Substance: KETOTIFEN FUMARATE
     Indication: EYE PRURITUS
     Dosage: UNK
     Route: 065
  7. AZELASTINE HYDROCHLORIDE. [Suspect]
     Active Substance: AZELASTINE HYDROCHLORIDE
     Indication: CONJUNCTIVITIS ALLERGIC

REACTIONS (1)
  - Drug ineffective [Unknown]
